FAERS Safety Report 6771137-7 (Version None)
Quarter: 2010Q2

REPORT INFORMATION
  Report Type: 
  Country: None (occurrence: None)
  Receive Date: 20100614
  Receipt Date: 20100614
  Transmission Date: 20101027
  Serious: Yes (Death, Hospitalization, Disabling)
  Sender: FDA-Public Use
  Company Number: None

PATIENT
  Sex: Male
  Weight: 61.2356 kg

DRUGS (1)
  1. VELCADE [Suspect]
     Indication: MULTIPLE MYELOMA
     Dosage: OCT. 2008 (2), FEB MARCH (6) APRIL MAY 2009 - 6

REACTIONS (6)
  - DIPLEGIA [None]
  - GASTROINTESTINAL DISORDER [None]
  - MONOPLEGIA [None]
  - NEOPLASM [None]
  - NERVOUS SYSTEM NEOPLASM [None]
  - SPINAL CORD NEOPLASM [None]
